FAERS Safety Report 4711131-0 (Version None)
Quarter: 2005Q3

REPORT INFORMATION
  Report Type: 
  Country: None (occurrence: None)
  Receive Date: 20050708
  Receipt Date: 20050317
  Transmission Date: 20060218
  Serious: Yes (Life-Threatening)
  Sender: FDA-Public Use
  Company Number: 2005-125006-NL

PATIENT
  Age: 33 Year
  Sex: Male

DRUGS (2)
  1. MIRTAZAPINE [Suspect]
     Dosage: 30 MG
     Route: 048
     Dates: start: 20040901
  2. OLANZAPINE [Suspect]
     Indication: DEPRESSION
     Dosage: 5 MG
     Route: 048
     Dates: start: 20040901

REACTIONS (3)
  - CHEST PAIN [None]
  - PLEURITIC PAIN [None]
  - PULMONARY EMBOLISM [None]
